FAERS Safety Report 4383151-X (Version None)
Quarter: 2004Q2

REPORT INFORMATION
  Report Type: 
  Country: None (occurrence: None)
  Receive Date: 20040618
  Receipt Date: 20040608
  Transmission Date: 20050107
  Serious: Yes (Hospitalization, Other)
  Sender: FDA-Public Use
  Company Number: US-JNJFOC-20040200922

PATIENT
  Age: 77 Year
  Sex: Male

DRUGS (11)
  1. DURAGESIC [Suspect]
     Indication: PAIN
     Dosage: 25 UG/HR, 1 IN 72 HOUR, TRANSDERMAL
     Route: 062
     Dates: start: 20031228
  2. FLOMAX [Concomitant]
  3. ZOLOFT [Concomitant]
  4. ASPIRIN [Concomitant]
  5. FOLIC ACID [Concomitant]
  6. MURELAX (OXAZEPAM) [Concomitant]
  7. OXYCONTIN [Concomitant]
  8. MIACALCIN [Concomitant]
  9. MULTIVITAMIN (MULTIVITAMINS) [Concomitant]
  10. OXYGEN (OXYGEN) [Concomitant]
  11. LEVAQUIN [Concomitant]

REACTIONS (13)
  - ABDOMINAL PAIN [None]
  - ACTINIC KERATOSIS [None]
  - BLOOD PRESSURE DIASTOLIC DECREASED [None]
  - BREATH SOUNDS DECREASED [None]
  - CONSTIPATION [None]
  - DEPRESSION [None]
  - DYSPNOEA EXERTIONAL [None]
  - INTESTINAL OBSTRUCTION [None]
  - LOOSE STOOLS [None]
  - LUMBAR SPINAL STENOSIS [None]
  - NAUSEA [None]
  - RALES [None]
  - URINARY TRACT INFECTION [None]
